FAERS Safety Report 15337612 (Version 1)
Quarter: 2018Q3

REPORT INFORMATION
  Report Type: Spontaneous
  Country: US (occurrence: US)
  Receive Date: 20180827
  Receipt Date: 20180827
  Transmission Date: 20181010
  Serious: Yes (Hospitalization)
  Sender: FDA-Public Use
  Company Number: None

PATIENT
  Age: 53 Year
  Sex: Male
  Weight: 97.4 kg

DRUGS (8)
  1. GAVILYTE [Concomitant]
  2. TRILIPIX [Concomitant]
     Active Substance: FENOFIBRIC ACID
  3. RISPERIDON [Concomitant]
     Active Substance: RISPERIDONE
  4. ZOCOR [Concomitant]
     Active Substance: SIMVASTATIN
  5. HYDRODIURIL [Concomitant]
     Active Substance: HYDROCHLOROTHIAZIDE
  6. ZEPATIER [Suspect]
     Active Substance: ELBASVIR\GRAZOPREVIR
     Indication: HEPATITIS C
     Route: 048
     Dates: start: 20161216, end: 20170310
  7. LISINOPRIL. [Concomitant]
     Active Substance: LISINOPRIL
  8. IBUPROFEN. [Concomitant]
     Active Substance: IBUPROFEN

REACTIONS (2)
  - Self-injurious ideation [None]
  - Therapy cessation [None]

NARRATIVE: CASE EVENT DATE: 20170205
